FAERS Safety Report 14445229 (Version 1)
Quarter: 2018Q1

REPORT INFORMATION
  Report Type: Spontaneous
  Country: US (occurrence: US)
  Receive Date: 20180126
  Receipt Date: 20180126
  Transmission Date: 20180509
  Serious: No
  Sender: FDA-Public Use
  Company Number: US-PFIZER INC-2018034796

PATIENT
  Age: 61 Year
  Sex: Female
  Weight: 78.2 kg

DRUGS (1)
  1. GABAPENTIN. [Suspect]
     Active Substance: GABAPENTIN
     Dosage: UNK UNK, 2X/DAY
     Route: 048

REACTIONS (1)
  - Gastrointestinal injury [Unknown]
